FAERS Safety Report 6714852-3 (Version None)
Quarter: 2010Q2

REPORT INFORMATION
  Report Type: 
  Country: None (occurrence: None)
  Receive Date: 20100507
  Receipt Date: 20100428
  Transmission Date: 20101027
  Serious: Yes (Other)
  Sender: FDA-Public Use
  Company Number: BR-ASTRAZENECA-2010SE19362

PATIENT
  Age: 13 Year
  Sex: Female

DRUGS (2)
  1. ATACAND [Suspect]
     Dosage: 3 TABLETS
     Route: 048
     Dates: start: 20100426, end: 20100426
  2. CRESTOR [Suspect]
     Dosage: 3 TABLETS
     Route: 048
     Dates: start: 20100426, end: 20100426

REACTIONS (3)
  - PALLOR [None]
  - SUICIDE ATTEMPT [None]
  - TREMOR [None]
